FAERS Safety Report 9187771 (Version 2)
Quarter: 2013Q1

REPORT INFORMATION
  Report Type: Spontaneous
  Country: US (occurrence: US)
  Receive Date: 20130325
  Receipt Date: 20130325
  Transmission Date: 20140127
  Serious: No
  Sender: FDA-Public Use
  Company Number: US-MYLANLABS-2012S1007655

PATIENT
  Age: 47 Year
  Sex: Female
  Weight: 113.4 kg

DRUGS (30)
  1. FENTANYL TRANSDERMAL SYSTEM [Suspect]
     Indication: BACK PAIN
     Dosage: Q72H
     Route: 062
     Dates: start: 201110, end: 201201
  2. FENTANYL TRANSDERMAL SYSTEM [Suspect]
     Indication: FIBROMYALGIA
     Dosage: Q72H
     Route: 062
     Dates: start: 201110, end: 201201
  3. FENTANYL TRANSDERMAL SYSTEM [Suspect]
     Indication: BACK PAIN
     Dosage: Q72H
     Route: 062
     Dates: start: 201201
  4. FENTANYL TRANSDERMAL SYSTEM [Suspect]
     Indication: FIBROMYALGIA
     Dosage: Q72H
     Route: 062
     Dates: start: 201201
  5. FENTANYL TRANSDERMAL SYSTEM [Suspect]
     Indication: BACK PAIN
     Dosage: Q72H
     Route: 062
     Dates: start: 201201
  6. FENTANYL TRANSDERMAL SYSTEM [Suspect]
     Indication: FIBROMYALGIA
     Dosage: Q72H
     Route: 062
     Dates: start: 201201
  7. NORCO [Concomitant]
     Indication: PAIN
     Dosage: 75/325MG
     Dates: start: 20100917
  8. FLEXERIL [Concomitant]
     Indication: PAIN
     Dates: start: 20100917
  9. RELAFEN [Concomitant]
     Indication: ANTIINFLAMMATORY THERAPY
     Dates: start: 2002
  10. TEMAZEPAM [Concomitant]
     Indication: INSOMNIA
     Dates: start: 2002
  11. TRAZODONE [Concomitant]
     Dates: start: 2007
  12. DIAZEPAM [Concomitant]
     Indication: BRUXISM
     Dates: start: 2002
  13. GABAPENTIN [Concomitant]
     Indication: FIBROMYALGIA
     Dates: start: 2002
  14. SAVELLA [Concomitant]
     Indication: FIBROMYALGIA
     Dates: start: 201101
  15. NEXIUM [Concomitant]
     Indication: GASTROOESOPHAGEAL REFLUX DISEASE
     Dates: start: 201202
  16. CYMBALTA [Concomitant]
     Indication: DEPRESSION
     Dates: start: 201201
  17. MVI [Concomitant]
  18. CALCIUM [Concomitant]
  19. VITAMIN C [Concomitant]
     Dosage: DOSE UNIT:1000 UNKNOWN
  20. VITAMIN B6 [Concomitant]
  21. FISH OIL [Concomitant]
  22. B12-VITAMIN [Concomitant]
     Route: 060
  23. MILK THISTLE [Concomitant]
  24. ESTRADIOL [Concomitant]
     Indication: HORMONE REPLACEMENT THERAPY
     Route: 048
  25. SYMBICORT [Concomitant]
     Indication: ASTHMA
  26. PSYLLIUM /01328801/ [Concomitant]
     Route: 048
  27. GLUCOSAMINE [Concomitant]
     Route: 048
  28. TRIAMCINOLONE [Concomitant]
     Indication: DERMATITIS
     Route: 061
  29. OLOPATADINE [Concomitant]
     Indication: CONJUNCTIVITIS
     Route: 031
  30. COMPOUND MIXTURE [Concomitant]
     Indication: GASTROOESOPHAGEAL REFLUX DISEASE
     Route: 048

REACTIONS (12)
  - Wheezing [Not Recovered/Not Resolved]
  - Dyspnoea [Unknown]
  - Muscle spasms [Not Recovered/Not Resolved]
  - Hyperhidrosis [Not Recovered/Not Resolved]
  - Feeling hot [Not Recovered/Not Resolved]
  - Rash [Not Recovered/Not Resolved]
  - Dry mouth [Not Recovered/Not Resolved]
  - Glossodynia [Not Recovered/Not Resolved]
  - Glossitis [Not Recovered/Not Resolved]
  - Flushing [Unknown]
  - Application site rash [Not Recovered/Not Resolved]
  - Application site pruritus [Not Recovered/Not Resolved]
